FAERS Safety Report 14482607 (Version 1)
Quarter: 2018Q1

REPORT INFORMATION
  Report Type: Spontaneous
  Country: JP (occurrence: JP)
  Receive Date: 20180203
  Receipt Date: 20180203
  Transmission Date: 20180509
  Serious: Yes (Other)
  Sender: FDA-Public Use
  Company Number: JP-ROCHE-2064973

PATIENT
  Age: 65 Year
  Sex: Male

DRUGS (11)
  1. METHOTREXATE. [Suspect]
     Active Substance: METHOTREXATE
     Indication: MANTLE CELL LYMPHOMA STAGE IV
     Route: 065
  2. CYCLOPHOSPHAMIDE. [Suspect]
     Active Substance: CYCLOPHOSPHAMIDE
     Dosage: DAY -3, -2, POST EVENT OCCURRENCE
     Route: 042
  3. METHOTREXATE. [Suspect]
     Active Substance: METHOTREXATE
     Dosage: POST EVENT OCCURRENCE
     Route: 037
  4. CYTARABINE. [Suspect]
     Active Substance: CYTARABINE
     Indication: MANTLE CELL LYMPHOMA STAGE IV
     Route: 065
  5. BUSULFAN. [Concomitant]
     Active Substance: BUSULFAN
     Dosage: ON DAY-7,-6,-5,-4
     Route: 042
  6. VINCRISTINE SULFATE. [Suspect]
     Active Substance: VINCRISTINE SULFATE
     Indication: MANTLE CELL LYMPHOMA STAGE IV
     Route: 042
  7. DEXAMETHASONE. [Suspect]
     Active Substance: DEXAMETHASONE
     Indication: MANTLE CELL LYMPHOMA STAGE IV
     Route: 065
  8. DOXORUBICIN HYDROCHLORIDE. [Suspect]
     Active Substance: DOXORUBICIN HYDROCHLORIDE
     Indication: MANTLE CELL LYMPHOMA STAGE IV
     Route: 042
  9. RITUXAN [Suspect]
     Active Substance: RITUXIMAB
     Indication: MANTLE CELL LYMPHOMA STAGE IV
     Dosage: 10 MG/ML
     Route: 041
  10. CYCLOPHOSPHAMIDE. [Suspect]
     Active Substance: CYCLOPHOSPHAMIDE
     Indication: MANTLE CELL LYMPHOMA STAGE IV
     Dosage: DRUG REPORTED AS CYCLOPHOSPHAMIDE HYDRATE
     Route: 042
  11. VP-16 [Concomitant]
     Active Substance: ETOPOSIDE
     Dosage: DAY-5,-4
     Route: 065

REACTIONS (2)
  - Pyrexia [Unknown]
  - Urinary retention [Unknown]
